FAERS Safety Report 9061879 (Version 5)
Quarter: 2014Q2

REPORT INFORMATION
  Report Type: Report from Study
  Country: US (occurrence: US)
  Receive Date: 20130128
  Receipt Date: 20140403
  Transmission Date: 20141212
  Serious: Yes (Hospitalization, Other)
  Sender: FDA-Public Use
  Company Number: US-US-EMD SERONO, INC.-7189043

PATIENT
  Age: 51 Year
  Sex: Female
  Weight: 109 kg

DRUGS (3)
  1. REBIF [Suspect]
     Indication: MULTIPLE SCLEROSIS
     Route: 058
     Dates: end: 201203
  2. REBIF [Suspect]
     Route: 058
     Dates: start: 20120913
  3. AMITRIPTYLINE [Concomitant]
     Indication: NEURALGIA

REACTIONS (13)
  - Asthma [Unknown]
  - Diabetes mellitus [Unknown]
  - Nephrolithiasis [Unknown]
  - Osteoarthritis [Recovering/Resolving]
  - Meniscus injury [Recovering/Resolving]
  - Anxiety [Unknown]
  - Stress [Unknown]
  - Carpal tunnel syndrome [Unknown]
  - Inner ear disorder [Unknown]
  - Balance disorder [Recovering/Resolving]
  - Nausea [Recovering/Resolving]
  - Feeling abnormal [Not Recovered/Not Resolved]
  - Malaise [Unknown]
